FAERS Safety Report 6306574-8 (Version None)
Quarter: 2009Q3

REPORT INFORMATION
  Report Type: 
  Country: None (occurrence: None)
  Receive Date: 20090812
  Receipt Date: 20090804
  Transmission Date: 20100115
  Serious: Yes (Hospitalization)
  Sender: FDA-Public Use
  Company Number: A0787477A

PATIENT
  Age: 75 Year
  Sex: Male
  Weight: 111.4 kg

DRUGS (9)
  1. AVANDIA [Suspect]
     Indication: DIABETES MELLITUS
     Dosage: 4MG TWICE PER DAY
     Route: 048
     Dates: start: 20050401, end: 20090101
  2. BYETTA [Concomitant]
  3. GLUCOPHAGE [Concomitant]
  4. LISINOPRIL [Concomitant]
  5. LORATADINE [Concomitant]
  6. LOVASTATIN [Concomitant]
  7. MAXZIDE [Concomitant]
  8. NIFEDIPINE [Concomitant]
  9. ZETIA [Concomitant]

REACTIONS (3)
  - AORTIC ARTERIOSCLEROSIS [None]
  - CARDIAC FAILURE CONGESTIVE [None]
  - SUPRAVENTRICULAR EXTRASYSTOLES [None]
